FAERS Safety Report 12419527 (Version 1)
Quarter: 2016Q2

REPORT INFORMATION
  Report Type: Spontaneous
  Country: GB (occurrence: GB)
  Receive Date: 20160531
  Receipt Date: 20160531
  Transmission Date: 20160815
  Serious: Yes (Disabling, Other)
  Sender: FDA-Public Use
  Company Number: GB-PFIZER INC-2016272039

PATIENT
  Age: 37 Year
  Sex: Female
  Weight: 65 kg

DRUGS (3)
  1. SULFASALAZINE. [Suspect]
     Active Substance: SULFASALAZINE
     Indication: PSORIATIC ARTHROPATHY
     Dosage: 500 MG, 2X/DAY (INCREASING WEEKLY BY 500MG AFTER STARTING AT 500 MG TWICE A DAY)
     Route: 048
     Dates: start: 20160316, end: 20160407
  2. METHOTREXATE [Concomitant]
     Active Substance: METHOTREXATE
     Dates: end: 201512
  3. VENLAFAXINE [Concomitant]
     Active Substance: VENLAFAXINE HYDROCHLORIDE

REACTIONS (5)
  - Seizure [Unknown]
  - Headache [Unknown]
  - Confusional state [Unknown]
  - Encephalitis [Recovering/Resolving]
  - Amnesia [Unknown]

NARRATIVE: CASE EVENT DATE: 20160407
